FAERS Safety Report 8966952 (Version 1)
Quarter: 2012Q4

REPORT INFORMATION
  Report Type: 
  Country: TR (occurrence: TR)
  Receive Date: 20121214
  Receipt Date: 20121214
  Transmission Date: 20130627
  Serious: Yes (Hospitalization)
  Sender: FDA-Public Use
  Company Number: TR-BAXTER-2012BAX026612

PATIENT
  Age: 3 Year
  Sex: Male
  Weight: 16.5 kg

DRUGS (2)
  1. FEIBA [Suspect]
     Indication: FACTOR VIII INHIBITION
     Route: 065
     Dates: start: 20121128
  2. FEIBA [Suspect]
     Route: 065
     Dates: start: 20121130

REACTIONS (1)
  - Vomiting [Recovered/Resolved]
